FAERS Safety Report 20039308 (Version 1)
Quarter: 2021Q4

REPORT INFORMATION
  Report Type: Other
  Country: FR (occurrence: FR)
  Receive Date: 20211105
  Receipt Date: 20211105
  Transmission Date: 20220303
  Serious: Yes (Life-Threatening, Other)
  Sender: FDA-Public Use
  Company Number: None

PATIENT
  Age: 23 Year
  Sex: Female

DRUGS (1)
  1. DROSPIRENONE [Suspect]
     Active Substance: DROSPIRENONE
     Indication: Contraception
     Dosage: 1 CP/J
     Route: 048
     Dates: start: 20201015, end: 20201213

REACTIONS (2)
  - Pain [Recovering/Resolving]
  - Ovarian vein thrombosis [Recovering/Resolving]

NARRATIVE: CASE EVENT DATE: 20201125
